FAERS Safety Report 11302534 (Version 1)
Quarter: 2015Q3

REPORT INFORMATION
  Report Type: Spontaneous
  Country: JP (occurrence: JP)
  Receive Date: 20150723
  Receipt Date: 20150723
  Transmission Date: 20151125
  Serious: Yes (Hospitalization)
  Sender: FDA-Public Use
  Company Number: JP-ROCHE-1611499

PATIENT
  Age: 63 Year
  Sex: Female
  Weight: 41 kg

DRUGS (21)
  1. MERCAZOLE [Suspect]
     Active Substance: CARBIMAZOLE
     Indication: BASEDOW^S DISEASE
     Route: 048
     Dates: start: 20140926, end: 20141030
  2. MERCAZOLE [Suspect]
     Active Substance: CARBIMAZOLE
     Indication: BASEDOW^S DISEASE
     Route: 048
     Dates: start: 20141031, end: 20141114
  3. MENESIT [Concomitant]
     Active Substance: CARBIDOPA\LEVODOPA
     Indication: PARKINSON^S DISEASE
     Dosage: 100MG AND 4 TIMES/DAY PLUS SINGLE USE
     Route: 048
     Dates: end: 20120517
  4. MENESIT [Concomitant]
     Active Substance: CARBIDOPA\LEVODOPA
     Indication: PARKINSON^S DISEASE
     Dosage: 50 100MGX4 TIMES/DAY PLUS MGX ONCE/DAY PLUS SINGLE USE
     Route: 048
     Dates: start: 20120518, end: 20121219
  5. LOXONIN [Concomitant]
     Active Substance: LOXOPROFEN SODIUM
     Route: 061
     Dates: start: 2003
  6. REQUIP [Concomitant]
     Active Substance: ROPINIROLE HYDROCHLORIDE
     Indication: PARKINSON^S DISEASE
     Dosage: AFTER THE BREAKFAST
     Route: 048
     Dates: start: 20140604
  7. RIVOTRIL [Suspect]
     Active Substance: CLONAZEPAM
     Indication: PARKINSON^S DISEASE
     Route: 048
     Dates: start: 20141024
  8. MENESIT [Concomitant]
     Active Substance: CARBIDOPA\LEVODOPA
     Indication: PARKINSON^S DISEASE
     Dosage: 100MG AND 7 TIMES/DAY PLUS SINGLE USE
     Route: 048
     Dates: start: 20130314, end: 20140917
  9. SEDIEL [Concomitant]
     Active Substance: TANDOSPIRONE
     Indication: PARKINSON^S DISEASE
     Route: 048
     Dates: start: 20121220
  10. MENESIT [Concomitant]
     Active Substance: CARBIDOPA\LEVODOPA
     Indication: PARKINSON^S DISEASE
     Dosage: 100 150MGX4 TIMES/DAY PLUS MGX5 TIMES/DAY PLUS SINGLE USE
     Route: 048
     Dates: start: 20141017, end: 20141023
  11. MENESIT [Concomitant]
     Active Substance: CARBIDOPA\LEVODOPA
     Indication: PARKINSON^S DISEASE
     Dosage: 150MG AND 8 TIMES/DAY PLUS SINGLE USE
     Route: 048
     Dates: start: 20141024
  12. COMTAN [Concomitant]
     Active Substance: ENTACAPONE
     Indication: PARKINSON^S DISEASE
     Route: 048
     Dates: end: 20121219
  13. COMTAN [Concomitant]
     Active Substance: ENTACAPONE
     Indication: PARKINSON^S DISEASE
     Route: 048
     Dates: start: 20121220, end: 20130313
  14. COMTAN [Concomitant]
     Active Substance: ENTACAPONE
     Indication: PARKINSON^S DISEASE
     Route: 048
     Dates: start: 20140918, end: 20141016
  15. RIVOTRIL [Suspect]
     Active Substance: CLONAZEPAM
     Indication: PARKINSON^S DISEASE
     Dosage: BEFORE RETIRING
     Route: 048
     Dates: start: 2003
  16. RIVOTRIL [Suspect]
     Active Substance: CLONAZEPAM
     Indication: PARKINSON^S DISEASE
     Route: 048
     Dates: start: 201406, end: 20141016
  17. MENESIT [Concomitant]
     Active Substance: CARBIDOPA\LEVODOPA
     Indication: PARKINSON^S DISEASE
     Dosage: 100MG AND 6 TIMES/DAY + SINGLE USE
     Route: 048
     Dates: start: 20121220, end: 20130313
  18. MENESIT [Concomitant]
     Active Substance: CARBIDOPA\LEVODOPA
     Indication: PARKINSON^S DISEASE
     Dosage: 100MG AND 10 TIMES/DAY PLUS SINGLE USE
     Route: 048
     Dates: start: 20140918, end: 20141016
  19. SEDIEL [Concomitant]
     Active Substance: TANDOSPIRONE
     Indication: PARKINSON^S DISEASE
     Dosage: AFTER THE SUPPER
     Route: 048
     Dates: start: 2003
  20. MENESIT [Concomitant]
     Active Substance: CARBIDOPA\LEVODOPA
     Indication: PARKINSON^S DISEASE
     Dosage: 19 6, 8, 10, 12, 13, 15, AND 17 O^CLOCK
     Route: 048
     Dates: start: 2003
  21. COMTAN [Concomitant]
     Active Substance: ENTACAPONE
     Indication: PARKINSON^S DISEASE
     Route: 048
     Dates: start: 20130314, end: 20140917

REACTIONS (2)
  - Agranulocytosis [Recovered/Resolved]
  - Product use issue [Unknown]

NARRATIVE: CASE EVENT DATE: 20141114
